FAERS Safety Report 8297403-4 (Version None)
Quarter: 2012Q2

REPORT INFORMATION
  Report Type: 
  Country: None (occurrence: None)
  Receive Date: 20120419
  Receipt Date: 20120409
  Transmission Date: 20120825
  Serious: Yes (Other)
  Sender: FDA-Public Use
  Company Number: US-JNJFOC-20110100817

PATIENT
  Sex: Female
  Weight: 84.37 kg

DRUGS (10)
  1. SPIRIVA [Concomitant]
     Indication: MULTIPLE ALLERGIES
     Route: 048
     Dates: start: 20101201
  2. PREVACID [Concomitant]
     Indication: GASTROOESOPHAGEAL REFLUX DISEASE
     Route: 048
     Dates: start: 20100101
  3. ALLEGRA [Concomitant]
     Indication: SEASONAL ALLERGY
     Route: 048
  4. PREDNISONE TAB [Concomitant]
     Indication: COLITIS ULCERATIVE
     Route: 048
  5. PREDNISOLONE [Concomitant]
     Indication: COLITIS ULCERATIVE
     Route: 048
  6. NORVASC [Concomitant]
     Route: 048
     Dates: start: 20090101
  7. REMICADE [Suspect]
     Indication: COLITIS ULCERATIVE
     Route: 042
     Dates: start: 20101126
  8. ALBUTEROL [Concomitant]
     Indication: MULTIPLE ALLERGIES
  9. FLUTICASONE PROPIONATE/SALMETEROL [Concomitant]
     Indication: MULTIPLE ALLERGIES
  10. XYZAL [Suspect]
     Indication: ANTIALLERGIC THERAPY
     Route: 048
     Dates: start: 20100419, end: 20110101

REACTIONS (16)
  - COLITIS ULCERATIVE [None]
  - GASTRITIS [None]
  - NAUSEA [None]
  - FATIGUE [None]
  - WEIGHT INCREASED [None]
  - BACK PAIN [None]
  - GASTROENTERITIS VIRAL [None]
  - RASH [None]
  - LARYNGITIS [None]
  - JOINT SWELLING [None]
  - DYSPHONIA [None]
  - VOMITING [None]
  - ARTHRALGIA [None]
  - ABNORMAL LOSS OF WEIGHT [None]
  - ASTHENIA [None]
  - BRONCHITIS [None]
